FAERS Safety Report 20367679 (Version 1)
Quarter: 2022Q1

REPORT INFORMATION
  Report Type: Spontaneous
  Country: US (occurrence: US)
  Receive Date: 20220124
  Receipt Date: 20220124
  Transmission Date: 20220423
  Serious: No
  Sender: FDA-Public Use
  Company Number: US-ELI_LILLY_AND_COMPANY-US202201008451

PATIENT
  Age: 77 Year
  Sex: Female

DRUGS (5)
  1. TRULICITY [Suspect]
     Active Substance: DULAGLUTIDE
     Indication: Type 2 diabetes mellitus
     Dosage: 0.75 MG, UNKNOWN
     Route: 058
     Dates: start: 20211101
  2. TRULICITY [Suspect]
     Active Substance: DULAGLUTIDE
     Dosage: 0.75 MG, BID
     Route: 058
     Dates: start: 20220110
  3. TRULICITY [Suspect]
     Active Substance: DULAGLUTIDE
     Dosage: 0.75 MG, UNKNOWN
     Route: 058
  4. HUMALOG [Suspect]
     Active Substance: INSULIN LISPRO
     Indication: Type 2 diabetes mellitus
     Dosage: 30 U, OTHER (PLUS OTHER UNITS)
     Route: 065
  5. TOUJEO [Concomitant]
     Active Substance: INSULIN GLARGINE
     Indication: Type 2 diabetes mellitus
     Dosage: 53 U, DAILY

REACTIONS (6)
  - Gastrointestinal disorder [Recovering/Resolving]
  - Frequent bowel movements [Recovering/Resolving]
  - Fatigue [Recovering/Resolving]
  - Lethargy [Recovering/Resolving]
  - Asthenia [Recovering/Resolving]
  - Inappropriate schedule of product administration [Recovering/Resolving]
